FAERS Safety Report 15076976 (Version 1)
Quarter: 2018Q2

REPORT INFORMATION
  Report Type: Spontaneous
  Country: FR (occurrence: FR)
  Receive Date: 20180627
  Receipt Date: 20180627
  Transmission Date: 20180711
  Serious: Yes (Hospitalization)
  Sender: FDA-Public Use
  Company Number: FR-PFIZER INC-2018255877

PATIENT
  Age: 82 Year
  Sex: Male

DRUGS (8)
  1. ATORVASTATIN [Concomitant]
     Active Substance: ATORVASTATIN
     Dosage: 10 MG, 1X/DAY
     Route: 048
  2. ZOLOFT [Suspect]
     Active Substance: SERTRALINE HYDROCHLORIDE
     Indication: DEPRESSION
     Dosage: UNK
     Route: 048
     Dates: end: 20180425
  3. CALCIUM SANDOZ /00060701/ [Concomitant]
     Active Substance: CALCIUM GLUCONATE
     Dosage: 2 DF, 1X/DAY
     Route: 048
  4. FOSAVANCE [Concomitant]
     Active Substance: ALENDRONATE SODIUM\CHOLECALCIFEROL
     Dosage: 1 DF, WEEKLY
     Route: 048
  5. AMETYCINE [Suspect]
     Active Substance: MITOMYCIN
     Indication: TRANSITIONAL CELL CARCINOMA
     Dosage: UNK
     Route: 043
     Dates: start: 20180424, end: 20180424
  6. ATENOLOL. [Concomitant]
     Active Substance: ATENOLOL
     Dosage: 25 MG, 1X/DAY
  7. ATARAX [Concomitant]
     Active Substance: HYDROXYZINE HYDROCHLORIDE
     Dosage: 25 MG, 1X/DAY
     Route: 048
  8. PLAVIX [Concomitant]
     Active Substance: CLOPIDOGREL BISULFATE
     Dosage: 75 MG, 1X/DAY
     Route: 048

REACTIONS (2)
  - Urinary retention [Recovered/Resolved]
  - Hyponatraemia [Recovered/Resolved]

NARRATIVE: CASE EVENT DATE: 20180424
